FAERS Safety Report 5024906-8 (Version None)
Quarter: 2006Q2

REPORT INFORMATION
  Report Type: 
  Country: None (occurrence: None)
  Receive Date: 20060607
  Receipt Date: 20060523
  Transmission Date: 20061013
  Serious: Yes (Hospitalization)
  Sender: FDA-Public Use
  Company Number: DEU-2006-0002233

PATIENT
  Age: 47 Year
  Sex: Female
  Weight: 70 kg

DRUGS (6)
  1. OXYCODON 10MG/NALOXON 5MG(NALOXONE HYDROCHLORIDE, OXYCODONE HYDROCHLOR [Suspect]
     Indication: BACK PAIN
     Dosage: 20 MG, DAILY, ORAL
     Route: 048
     Dates: start: 20051205
  2. NOVALGIN [Concomitant]
  3. BERODUAL (FENOTEROL HYDROBROMIDE, IPRATROPIUM BROMIDE) [Concomitant]
  4. PULMICORT [Concomitant]
  5. BERLTHYROX (LEVOTHYROXINE SODIUM) [Concomitant]
  6. MAGNESIUM DIASPORAL [Concomitant]

REACTIONS (1)
  - RENAL COLIC [None]
